FAERS Safety Report 10776350 (Version 2)
Quarter: 2015Q3

REPORT INFORMATION
  Report Type: Spontaneous
  Country: US (occurrence: US)
  Receive Date: 20150209
  Receipt Date: 20150730
  Transmission Date: 20151125
  Serious: No
  Sender: FDA-Public Use
  Company Number: US-GILEAD-2013-0073542

PATIENT
  Age: 59 Year
  Sex: Female

DRUGS (8)
  1. RANEXA [Suspect]
     Active Substance: RANOLAZINE
     Indication: ANGINA PECTORIS
     Dosage: UNK
     Route: 048
     Dates: start: 20130515
  2. CRESTOR [Concomitant]
     Active Substance: ROSUVASTATIN CALCIUM
  3. ALEVE [Concomitant]
     Active Substance: NAPROXEN SODIUM
  4. RANEXA [Suspect]
     Active Substance: RANOLAZINE
     Indication: CHEST PAIN
  5. LEVSIN [Concomitant]
     Active Substance: HYOSCYAMINE SULFATE
  6. PREMARIN [Concomitant]
     Active Substance: ESTROGENS, CONJUGATED
  7. RANEXA [Suspect]
     Active Substance: RANOLAZINE
     Indication: CORONARY ARTERY DISEASE
     Dosage: 500 MG, UNK
     Route: 048
     Dates: start: 2012, end: 20130405
  8. ESTRACE [Concomitant]
     Active Substance: ESTRADIOL

REACTIONS (3)
  - Chest pain [Unknown]
  - Back pain [Unknown]
  - Tremor [Unknown]

NARRATIVE: CASE EVENT DATE: 20130409
